FAERS Safety Report 5002726-8 (Version None)
Quarter: 2006Q2

REPORT INFORMATION
  Report Type: 
  Country: None (occurrence: None)
  Receive Date: 20060428
  Receipt Date: 20060413
  Transmission Date: 20061013
  Serious: Yes (Hospitalization)
  Sender: FDA-Public Use
  Company Number: 2004-112436-NL

PATIENT
  Age: 79 Year
  Sex: Female

DRUGS (15)
  1. MIRTAZAPINE [Suspect]
     Indication: INSOMNIA
     Dosage: 30 MG
     Dates: start: 20030715, end: 20030717
  2. COLECALCIFEROL [Concomitant]
  3. GLICLAZIDE [Concomitant]
  4. SODIUM PICOSULFATE [Concomitant]
  5. OSTEO [Concomitant]
  6. MOVICOL [Concomitant]
  7. POTASSIUM GLUCONATE TAB [Concomitant]
  8. ROFECOXIB [Concomitant]
  9. PARACETAMOL [Concomitant]
  10. MOVICOL [Concomitant]
  11. GLICLAZIDE [Concomitant]
  12. POTASSIUM GLUCONATE TAB [Concomitant]
  13. NATRIUMPICOSULFAAT [Concomitant]
  14. CALCIUM GLUCONATE [Concomitant]
  15. VITAMIN D [Concomitant]

REACTIONS (6)
  - ABNORMAL BEHAVIOUR [None]
  - DYSTONIA [None]
  - HYPERTONIA [None]
  - MUSCULOSKELETAL STIFFNESS [None]
  - MYOCLONUS [None]
  - TORTICOLLIS [None]
